FAERS Safety Report 23865959 (Version 3)
Quarter: 2024Q3

REPORT INFORMATION
  Report Type: Spontaneous
  Country: US (occurrence: US)
  Receive Date: 20240517
  Receipt Date: 20240702
  Transmission Date: 20241016
  Serious: Yes (Other)
  Sender: REGENERON
  Company Number: US-REGENERON PHARMACEUTICALS, INC.-2024-072956

PATIENT
  Sex: Female

DRUGS (2)
  1. EYLEA HD [Suspect]
     Active Substance: AFLIBERCEPT
     Indication: Retinal vein occlusion
     Dosage: 1 [DF], EVERY 5 WEEKS INTO RIGHT EYE (FORMULATION: HD VIAL)
     Dates: start: 20240419, end: 20240419
  2. EYLEA HD [Suspect]
     Active Substance: AFLIBERCEPT
     Indication: Cystoid macular oedema
     Dosage: 1 [DF], EVERY 5 WEEKS INTO RIGHT EYE (FORMULATION: HD VIAL)
     Dates: start: 20240524

REACTIONS (3)
  - Intra-ocular injection complication [Recovering/Resolving]
  - Off label use [Not Recovered/Not Resolved]
  - Wrong technique in product usage process [Not Recovered/Not Resolved]

NARRATIVE: CASE EVENT DATE: 20240419
